FAERS Safety Report 7295672-0 (Version None)
Quarter: 2011Q1

REPORT INFORMATION
  Report Type: 
  Country: None (occurrence: None)
  Receive Date: 20110216
  Receipt Date: 20101209
  Transmission Date: 20110831
  Serious: No
  Sender: FDA-Public Use
  Company Number: US-ABBOTT-10P-163-0690546-00

PATIENT
  Sex: Male

DRUGS (3)
  1. SIMCOR [Suspect]
     Dosage: 500/20MG TWICE DAILY
     Route: 048
  2. SIMCOR [Suspect]
     Indication: DYSLIPIDAEMIA
     Dosage: 500/20MG DAILY
     Route: 048
     Dates: start: 20101009
  3. ASPIRIN [Concomitant]
     Indication: PRODUCT USED FOR UNKNOWN INDICATION
     Route: 048

REACTIONS (5)
  - FLUSHING [None]
  - ERYTHEMA [None]
  - PRURITUS [None]
  - FEELING HOT [None]
  - SKIN BURNING SENSATION [None]
